FAERS Safety Report 5173994-7 (Version None)
Quarter: 2006Q4

REPORT INFORMATION
  Report Type: 
  Country: None (occurrence: None)
  Receive Date: 20061214
  Receipt Date: 20060906
  Transmission Date: 20070319
  Serious: Yes (Disabling)
  Sender: FDA-Public Use
  Company Number: US-MERCK-0609USA00969

PATIENT
  Age: 5 Year
  Sex: Male
  Weight: 23 kg

DRUGS (4)
  1. SINGULAIR [Suspect]
     Indication: ASTHMA
     Route: 048
     Dates: start: 20050929, end: 20060906
  2. SINGULAIR [Suspect]
     Route: 048
     Dates: end: 20050901
  3. SINGULAIR [Suspect]
     Indication: SEASONAL ALLERGY
     Route: 048
     Dates: start: 20050929, end: 20060906
  4. SINGULAIR [Suspect]
     Route: 048
     Dates: end: 20050901

REACTIONS (6)
  - ABNORMAL BEHAVIOUR [None]
  - DYSSOMNIA [None]
  - HALLUCINATION [None]
  - NIGHTMARE [None]
  - PALPITATIONS [None]
  - PRESCRIBED OVERDOSE [None]
